FAERS Safety Report 17186680 (Version 1)
Quarter: 2019Q4

REPORT INFORMATION
  Report Type: Spontaneous
  Country: NO (occurrence: NO)
  Receive Date: 20191220
  Receipt Date: 20191220
  Transmission Date: 20200122
  Serious: Yes (Hospitalization, Other)
  Sender: FDA-Public Use
  Company Number: NO-FRESENIUS KABI-FK201914158

PATIENT
  Age: 22 Year
  Sex: Female
  Weight: 55 kg

DRUGS (3)
  1. LIDOCAINE/EPINEPHRINE (MANUFACTURER UNKNOWN) [Suspect]
     Active Substance: EPINEPHRINE BITARTRATE\LIDOCAINE HYDROCHLORIDE
     Indication: LOCAL ANAESTHESIA
     Dosage: 6 ML OF 2 PERCENT (120 MG) LIDOCAINE WITH 15 MICROGRAM/ML EPINEPHRINE
     Route: 045
  2. REMIFENTANIL [Concomitant]
     Active Substance: REMIFENTANIL
     Indication: INDUCTION OF ANAESTHESIA
     Route: 042
  3. PROPOFOL. [Concomitant]
     Active Substance: PROPOFOL
     Indication: INDUCTION OF ANAESTHESIA
     Route: 042

REACTIONS (2)
  - Pulmonary oedema [Recovered/Resolved]
  - Local anaesthetic systemic toxicity [Recovered/Resolved]
